FAERS Safety Report 10255524 (Version 1)
Quarter: 2014Q2

REPORT INFORMATION
  Report Type: Report from Study
  Country: CH (occurrence: CH)
  Receive Date: 20140624
  Receipt Date: 20140624
  Transmission Date: 20141212
  Serious: Yes (Other)
  Sender: FDA-Public Use
  Company Number: CH-MYLANLABS-2014S1014441

PATIENT
  Age: 28 Year
  Sex: Male

DRUGS (2)
  1. AZATHIOPRINE [Suspect]
     Indication: INTENTIONAL OVERDOSE
     Dosage: 12500MG (180.1 MG/KG)
     Route: 065
  2. AZATHIOPRINE [Suspect]
     Indication: OFF LABEL USE
     Dosage: 12500MG (180.1 MG/KG)
     Route: 065

REACTIONS (8)
  - Intentional overdose [Unknown]
  - Suicide attempt [Unknown]
  - Nausea [Unknown]
  - Abdominal pain [Unknown]
  - Headache [Unknown]
  - Dyspnoea [Unknown]
  - Hepatic enzyme increased [Unknown]
  - White blood cell count decreased [Unknown]
